FAERS Safety Report 8458790-7 (Version None)
Quarter: 2012Q2

REPORT INFORMATION
  Report Type: 
  Country: None (occurrence: None)
  Receive Date: 20120622
  Receipt Date: 20120613
  Transmission Date: 20120825
  Serious: Yes (Hospitalization, Other)
  Sender: FDA-Public Use
  Company Number: US-BAYER-2011-109621

PATIENT
  Age: 24 Year
  Sex: Female
  Weight: 58.957 kg

DRUGS (4)
  1. NSAID'S [Concomitant]
     Indication: PAIN
     Dosage: UNK UNK, PRN
  2. PERCOCET [Concomitant]
     Dosage: UNK
     Route: 048
     Dates: start: 20070213
  3. YASMIN [Suspect]
     Dosage: UNK
     Dates: start: 20060701, end: 20080801
  4. ZOFRAN [Concomitant]
     Dosage: 8 MG, UNK
     Route: 048
     Dates: start: 20070213

REACTIONS (7)
  - ABDOMINAL PAIN [None]
  - EMOTIONAL DISTRESS [None]
  - BILIARY DYSKINESIA [None]
  - IMPAIRED GASTRIC EMPTYING [None]
  - ABDOMINAL PAIN UPPER [None]
  - QUALITY OF LIFE DECREASED [None]
  - GALLBLADDER DISORDER [None]
